FAERS Safety Report 8212533-0 (Version None)
Quarter: 2012Q1

REPORT INFORMATION
  Report Type: 
  Country: None (occurrence: None)
  Receive Date: 20120315
  Receipt Date: 20120314
  Transmission Date: 20120608
  Serious: Yes (Hospitalization)
  Sender: FDA-Public Use
  Company Number: US-GLAXOSMITHKLINE-R0019584B

PATIENT
  Age: 79 Year
  Sex: Male

DRUGS (3)
  1. BLINDED VACCINE [Suspect]
     Route: 030
     Dates: start: 20110519, end: 20110519
  2. AVODART [Suspect]
     Indication: BENIGN PROSTATIC HYPERPLASIA
     Dosage: .4MG PER DAY
     Route: 048
     Dates: start: 20111012, end: 20120306
  3. AMIODARONE HYDROCHLORIDE [Suspect]
     Indication: ATRIAL FIBRILLATION
     Dosage: 200MG PER DAY
     Route: 048
     Dates: start: 20110903, end: 20120306

REACTIONS (1)
  - ORTHOSTATIC HYPOTENSION [None]
